FAERS Safety Report 20638652 (Version 11)
Quarter: 2023Q1

REPORT INFORMATION
  Report Type: Report from Study
  Country: CA (occurrence: CA)
  Receive Date: 20220325
  Receipt Date: 20230308
  Transmission Date: 20230418
  Serious: Yes (Other)
  Sender: FDA-Public Use
  Company Number: CA-OTSUKA-2021_000009

PATIENT
  Sex: Male

DRUGS (15)
  1. CEDAZURIDINE\DECITABINE [Suspect]
     Active Substance: CEDAZURIDINE\DECITABINE
     Indication: Myelodysplastic syndrome
     Dosage: 135 MG (35 MG DECITABINE AND 100 MG CEDAZURIDINE) 5 PILLS PER CYCLE
     Route: 048
     Dates: start: 20201126
  2. CEDAZURIDINE\DECITABINE [Suspect]
     Active Substance: CEDAZURIDINE\DECITABINE
     Dosage: 135 MG (35 MG DECITABINE AND 100 MG CEDAZURIDINE), 6 WEEKS CYCLE
     Route: 048
     Dates: end: 20230117
  3. GABAPENTIN [Concomitant]
     Active Substance: GABAPENTIN
     Indication: Arthralgia
     Dosage: 200 MG
     Route: 065
  4. ZOPICLONE [Concomitant]
     Active Substance: ZOPICLONE
     Indication: Sleep disorder
     Dosage: 7.5 MG (2 TABLETS AT NIGHT)
     Route: 065
  5. OXYCODONE [Concomitant]
     Active Substance: OXYCODONE
     Indication: Arthralgia
     Dosage: 325 MG
     Route: 065
  6. ELIQUIS [Concomitant]
     Active Substance: APIXABAN
     Indication: Product used for unknown indication
     Dosage: 5 MG, BID
     Route: 065
  7. ATORVASTATIN [Concomitant]
     Active Substance: ATORVASTATIN
     Indication: Product used for unknown indication
     Dosage: 40 MG, QD
     Route: 065
  8. DEFERASIROX [Concomitant]
     Active Substance: DEFERASIROX
     Indication: Product used for unknown indication
     Dosage: 360 MG (180 MG, TWICE DAILY)
     Route: 048
  9. RAMIPRIL [Concomitant]
     Active Substance: RAMIPRIL
     Indication: Product used for unknown indication
     Dosage: 5 MG, QD
     Route: 065
  10. ALLOPURINOL [Concomitant]
     Active Substance: ALLOPURINOL
     Indication: Product used for unknown indication
     Dosage: 300 MG, QD
     Route: 065
  11. ACETAMINOPHEN\OXYCODONE HYDROCHLORIDE [Concomitant]
     Active Substance: ACETAMINOPHEN\OXYCODONE HYDROCHLORIDE
     Indication: Product used for unknown indication
     Dosage: 325 MG, QID
     Route: 065
  12. DANAZOL [Concomitant]
     Active Substance: DANAZOL
     Indication: Product used for unknown indication
     Dosage: 200 MG, BID
     Route: 065
  13. PANTOPRAZOLE [Concomitant]
     Active Substance: PANTOPRAZOLE
     Indication: Product used for unknown indication
     Dosage: 40 MG, BID
     Route: 065
  14. SUCRALFATE [Concomitant]
     Active Substance: SUCRALFATE
     Indication: Product used for unknown indication
     Dosage: 1 G, BID
  15. VITAMIN D NOS [Concomitant]
     Active Substance: VITAMIN D NOS
     Indication: Product used for unknown indication
     Dosage: 1000 MG, QD (PREBIOTICS)
     Route: 065

REACTIONS (11)
  - Full blood count abnormal [Recovered/Resolved]
  - Blood product transfusion dependent [Unknown]
  - Haemoglobin decreased [Recovered/Resolved]
  - Platelet count decreased [Recovered/Resolved]
  - White blood cell count decreased [Unknown]
  - Illness [Unknown]
  - Localised infection [Unknown]
  - Nausea [Recovered/Resolved]
  - Neutrophil count decreased [Recovered/Resolved]
  - Product use issue [Unknown]
  - Drug ineffective [Unknown]
